FAERS Safety Report 6554763-X (Version None)
Quarter: 2010Q1

REPORT INFORMATION
  Report Type: 
  Country: None (occurrence: None)
  Receive Date: 20100127
  Receipt Date: 20100120
  Transmission Date: 20100710
  Serious: Yes (Death, Hospitalization)
  Sender: FDA-Public Use
  Company Number: US-SANOFI-AVENTIS-2010SA004342

PATIENT
  Age: 89 Year
  Sex: Female
  Weight: 74.83 kg

DRUGS (6)
  1. PLAVIX [Suspect]
     Indication: CORONARY ARTERY DISEASE
     Route: 048
  2. CHOLESTEROL- AND TRIGLYCERIDE REDUCERS [Concomitant]
     Route: 048
  3. HYDROCHLOROTHIAZIDE [Concomitant]
     Route: 048
  4. METOPROLOL [Concomitant]
     Route: 048
  5. LIPITOR [Concomitant]
     Route: 048
  6. POTASSIUM [Concomitant]
     Route: 048

REACTIONS (11)
  - ANAEMIA [None]
  - CARDIAC FAILURE [None]
  - FALL [None]
  - HAEMATOMA [None]
  - INTRACARDIAC THROMBUS [None]
  - JOINT DISLOCATION [None]
  - LOSS OF CONSCIOUSNESS [None]
  - MALAISE [None]
  - PERIPHERAL ARTERIAL OCCLUSIVE DISEASE [None]
  - PERIPHERAL EMBOLISM [None]
  - PNEUMONIA [None]
